FAERS Safety Report 16487241 (Version 1)
Quarter: 2019Q2

REPORT INFORMATION
  Report Type: Spontaneous
  Country: US (occurrence: US)
  Receive Date: 20190517
  Receipt Date: 20190517
  Transmission Date: 20190711
  Serious: Yes (Hospitalization, Other)
  Sender: FDA-Public Use
  Company Number: None

PATIENT
  Age: 58 Year
  Sex: Female

DRUGS (17)
  1. ASPIRIN. [Concomitant]
     Active Substance: ASPIRIN
  2. DEXILANT [Concomitant]
     Active Substance: DEXLANSOPRAZOLE
  3. KEPPRA [Concomitant]
     Active Substance: LEVETIRACETAM
  4. ZOCOR [Suspect]
     Active Substance: SIMVASTATIN
  5. TOPAMAX [Concomitant]
     Active Substance: TOPIRAMATE
  6. PERCOCET [Suspect]
     Active Substance: ACETAMINOPHEN\OXYCODONE HYDROCHLORIDE
  7. COUMADIN [Suspect]
     Active Substance: WARFARIN SODIUM
     Indication: ANTIPHOSPHOLIPID SYNDROME
     Route: 048
     Dates: start: 2006
  8. CELLCEPT [Concomitant]
     Active Substance: MYCOPHENOLATE MOFETIL\MYCOPHENOLATE MOFETIL HYDROCHLORIDE
  9. LASIX [Concomitant]
     Active Substance: FUROSEMIDE
  10. AMIODARONE [Concomitant]
     Active Substance: AMIODARONE
  11. CYMBALTA [Concomitant]
     Active Substance: DULOXETINE HYDROCHLORIDE
  12. LOVENOX [Concomitant]
     Active Substance: ENOXAPARIN SODIUM
  13. CALCIUM [Concomitant]
     Active Substance: CALCIUM
  14. CELEBREX [Concomitant]
     Active Substance: CELECOXIB
  15. IRON [Concomitant]
     Active Substance: IRON
  16. POTASSIUM [Concomitant]
     Active Substance: POTASSIUM
  17. VIT D [Concomitant]
     Active Substance: VITAMIN D NOS

REACTIONS (5)
  - Mitral valve stenosis [None]
  - Dyspnoea [None]
  - Hypoxia [None]
  - Mitral valve incompetence [None]
  - Pleural effusion [None]

NARRATIVE: CASE EVENT DATE: 20150628
